FAERS Safety Report 10219133 (Version 1)
Quarter: 2014Q2

REPORT INFORMATION
  Report Type: Spontaneous
  Country: ES (occurrence: ES)
  Receive Date: 20140605
  Receipt Date: 20140605
  Transmission Date: 20141212
  Serious: Yes (Death)
  Sender: FDA-Public Use
  Company Number: PHHY2014ES066886

PATIENT
  Age: 59 Year
  Sex: Female

DRUGS (8)
  1. TACROLIMUS [Suspect]
     Indication: PROPHYLAXIS AGAINST GRAFT VERSUS HOST DISEASE
     Route: 048
  2. TACROLIMUS [Suspect]
     Indication: PROPHYLAXIS AGAINST GRAFT VERSUS HOST DISEASE
     Dosage: 0.02 MG/KG, UNK
     Route: 042
  3. SIROLIMUS [Concomitant]
     Indication: PROPHYLAXIS AGAINST GRAFT VERSUS HOST DISEASE
     Dosage: 6 MG, UNK
     Route: 048
  4. SIROLIMUS [Concomitant]
     Dosage: 4 MG, QD
     Route: 048
  5. ANTIVIRALS [Concomitant]
     Indication: PROPHYLAXIS
  6. URSODEOXYCHOLIC ACID [Concomitant]
     Indication: PROPHYLAXIS
     Dosage: 600-900 MG, QD
     Route: 048
  7. ANTIBACTERIALS FOR SYSTEMIC USE [Concomitant]
     Indication: PROPHYLAXIS
  8. ANTIFUNGALS [Concomitant]
     Indication: PROPHYLAXIS

REACTIONS (7)
  - Thrombotic microangiopathy [Fatal]
  - Haemoglobin decreased [Fatal]
  - Blood lactate dehydrogenase increased [Fatal]
  - Thrombocytopenia [Fatal]
  - Red blood cell schistocytes present [Fatal]
  - Disease recurrence [Fatal]
  - Immunosuppressant drug level increased [Unknown]
